FAERS Safety Report 15351977 (Version 1)
Quarter: 2018Q3

REPORT INFORMATION
  Report Type: Spontaneous
  Country: CA (occurrence: CA)
  Receive Date: 20180905
  Receipt Date: 20180905
  Transmission Date: 20181010
  Serious: Yes (Life-Threatening, Other)
  Sender: FDA-Public Use
  Company Number: CA-PFIZER INC-2018355376

PATIENT
  Age: 17 Day
  Sex: Female
  Weight: 3 kg

DRUGS (8)
  1. ROCURONIUM [Concomitant]
     Active Substance: ROCURONIUM BROMIDE
     Dosage: UNK
  2. ADENOSINE. [Concomitant]
     Active Substance: ADENOSINE
     Dosage: UNK
  3. AMPICILLIN [Concomitant]
     Active Substance: AMPICILLIN
     Dosage: UNK
  4. FENTANYL. [Concomitant]
     Active Substance: FENTANYL
     Dosage: UNK
  5. KETAMINE HYDROCHLORIDE. [Concomitant]
     Active Substance: KETAMINE HYDROCHLORIDE
     Dosage: UNK
  6. AMIODARONE HCL [Suspect]
     Active Substance: AMIODARONE HYDROCHLORIDE
     Indication: SUPRAVENTRICULAR TACHYCARDIA
     Dosage: 17 MG, SINGLE (TOTAL)
     Route: 042
  7. RED BLOOD CELLS [Concomitant]
     Active Substance: HUMAN RED BLOOD CELL
     Dosage: UNK
  8. CEFOTAXIME [Concomitant]
     Active Substance: CEFOTAXIME SODIUM
     Dosage: UNK

REACTIONS (3)
  - Myocardial depression [Recovered/Resolved]
  - Blood pH decreased [Recovered/Resolved]
  - Hypoperfusion [Recovered/Resolved]
